FAERS Safety Report 17983512 (Version 4)
Quarter: 2020Q3

REPORT INFORMATION
  Report Type: Spontaneous
  Country: US (occurrence: US)
  Receive Date: 20200706
  Receipt Date: 20200928
  Transmission Date: 20201103
  Serious: Yes (Other)
  Sender: FDA-Public Use
  Company Number: US-BAYER-2020-129442

PATIENT
  Sex: Female

DRUGS (1)
  1. MIRENA [Suspect]
     Active Substance: LEVONORGESTREL
     Dosage: 20 ?G PER DAY CONTINUOUSLY
     Route: 015
     Dates: start: 20071108, end: 20200728

REACTIONS (8)
  - Drug ineffective [None]
  - Device dislocation [Recovered/Resolved]
  - Device breakage [Recovered/Resolved]
  - Pregnancy with contraceptive device [Recovered/Resolved]
  - Procedural pain [Not Recovered/Not Resolved]
  - Device use issue [Recovered/Resolved]
  - Ovarian perforation [Unknown]
  - Pelvic pain [Recovered/Resolved]

NARRATIVE: CASE EVENT DATE: 20101123
